FAERS Safety Report 21228839 (Version 1)
Quarter: 2022Q3

REPORT INFORMATION
  Report Type: Spontaneous
  Country: JP (occurrence: JP)
  Receive Date: 20220818
  Receipt Date: 20220818
  Transmission Date: 20221027
  Serious: Yes (Life-Threatening)
  Sender: FDA-Public Use
  Company Number: JP-BAUSCH-BL-2022-019943

PATIENT
  Age: 63 Year
  Sex: Male

DRUGS (11)
  1. GANCICLOVIR [Suspect]
     Active Substance: GANCICLOVIR
     Indication: Pneumonia cytomegaloviral
     Route: 065
  2. FOSCARNET [Suspect]
     Active Substance: FOSCARNET
     Indication: Pneumonia cytomegaloviral
     Route: 065
  3. METHYLPREDNISOLONE [Suspect]
     Active Substance: METHYLPREDNISOLONE
     Indication: Pneumonia cytomegaloviral
     Dosage: 3 TIMES WITH PULSE STEROID THERAPY
     Route: 065
  4. ACYCLOVIR [Concomitant]
     Active Substance: ACYCLOVIR
     Indication: Herpes simplex
  5. DORIPENEM [Concomitant]
     Active Substance: DORIPENEM
     Indication: Pneumonia bacterial
     Route: 042
  6. TEICOPLANIN [Concomitant]
     Active Substance: TEICOPLANIN
     Indication: Pneumonia bacterial
     Route: 042
  7. LEVOFLOXACIN [Concomitant]
     Active Substance: LEVOFLOXACIN
     Indication: Pneumonia bacterial
     Route: 042
  8. FLUDARABINE [Concomitant]
     Active Substance: FLUDARABINE PHOSPHATE
     Indication: Acute lymphocytic leukaemia
     Dosage: CHEMOTHERAPY
  9. FLUDARABINE [Concomitant]
     Active Substance: FLUDARABINE PHOSPHATE
     Indication: Chemotherapy
  10. BUSULFAN [Concomitant]
     Active Substance: BUSULFAN
     Indication: Acute lymphocytic leukaemia
     Dosage: CHEMOTHERAPY
  11. BUSULFAN [Concomitant]
     Active Substance: BUSULFAN
     Indication: Chemotherapy

REACTIONS (1)
  - Therapy non-responder [Unknown]
